FAERS Safety Report 4639782-2 (Version None)
Quarter: 2005Q2

REPORT INFORMATION
  Report Type: 
  Country: None (occurrence: None)
  Receive Date: 20050328
  Receipt Date: 20050203
  Transmission Date: 20051028
  Serious: No
  Sender: FDA-Public Use
  Company Number: USA051088093

PATIENT
  Age: 38 Year
  Sex: Male

DRUGS (2)
  1. STRATTERA [Suspect]
     Indication: ATTENTION DEFICIT/HYPERACTIVITY DISORDER
     Dosage: 20 MG DAY
     Dates: start: 20040501
  2. METOPROLOL TARTRATE [Concomitant]

REACTIONS (3)
  - DEPENDENCE [None]
  - SPERM COUNT DECREASED [None]
  - SPERMATOZOA PROGRESSIVE MOTILITY DECREASED [None]
